FAERS Safety Report 6828213-X (Version None)
Quarter: 2010Q3

REPORT INFORMATION
  Report Type: 
  Country: None (occurrence: None)
  Receive Date: 20100709
  Receipt Date: 20070202
  Transmission Date: 20110219
  Serious: No
  Sender: FDA-Public Use
  Company Number: US-PFIZER INC-2007009702

PATIENT
  Sex: Female
  Weight: 52.62 kg

DRUGS (5)
  1. CHANTIX [Suspect]
     Indication: SMOKING CESSATION THERAPY
     Dates: start: 20070124
  2. DYAZIDE [Concomitant]
  3. POTASSIUM [Concomitant]
  4. NIFEDIPINE [Concomitant]
  5. LYRICA [Concomitant]

REACTIONS (1)
  - NAUSEA [None]
